FAERS Safety Report 8618094-6 (Version None)
Quarter: 2012Q3

REPORT INFORMATION
  Report Type: 
  Country: None (occurrence: None)
  Receive Date: 20120824
  Receipt Date: 20120503
  Transmission Date: 20120928
  Serious: No
  Sender: FDA-Public Use
  Company Number: US-ASTRAZENECA-2012SE28748

PATIENT
  Age: 44 Year
  Sex: Female

DRUGS (3)
  1. ALBUTEROL [Concomitant]
  2. SINGULAIR [Concomitant]
  3. SYMBICORT [Suspect]
     Dosage: 4.5 MCG, 2 PUFFS TWICE DAILLY
     Route: 055

REACTIONS (1)
  - EPIGLOTTITIS [None]
